FAERS Safety Report 18169483 (Version 3)
Quarter: 2020Q4

REPORT INFORMATION
  Report Type: Report from Study
  Country: US (occurrence: US)
  Receive Date: 20200819
  Receipt Date: 20201006
  Transmission Date: 20210113
  Serious: Yes (Hospitalization, Other)
  Sender: FDA-Public Use
  Company Number: US-GILEAD-2020-0481301

PATIENT
  Age: 13 Year
  Sex: Male
  Weight: 23 kg

DRUGS (6)
  1. AMBRISENTAN [Suspect]
     Active Substance: AMBRISENTAN
     Indication: PULMONARY ARTERIAL HYPERTENSION
     Dosage: 10 MG, QD
     Route: 065
     Dates: start: 20161011
  2. REMODULIN [Suspect]
     Active Substance: TREPROSTINIL
     Dosage: UNK128 NG/KM/MIN
     Route: 042
  3. REMODULIN [Suspect]
     Active Substance: TREPROSTINIL
     Indication: PULMONARY ARTERIAL HYPERTENSION
     Dosage: UNK
     Route: 042
     Dates: start: 20160724
  4. REMODULIN [Suspect]
     Active Substance: TREPROSTINIL
     Dosage: 116NG/KG/MIN
     Route: 042
     Dates: start: 20200724
  5. REMODULIN [Suspect]
     Active Substance: TREPROSTINIL
     Dosage: 2 MG, Q1SECOND
     Route: 042
     Dates: start: 20200520
  6. CLONIDINE. [Concomitant]
     Active Substance: CLONIDINE

REACTIONS (13)
  - Suicidal ideation [Unknown]
  - Ocular hyperaemia [Not Recovered/Not Resolved]
  - Pulmonary hypoperfusion [Unknown]
  - Biopsy bone marrow [Unknown]
  - Pulmonary arterial pressure increased [Unknown]
  - Vascular device infection [Unknown]
  - Iron deficiency [Unknown]
  - Sleep disorder [Not Recovered/Not Resolved]
  - Abnormal behaviour [Not Recovered/Not Resolved]
  - Attention deficit hyperactivity disorder [Not Recovered/Not Resolved]
  - Weight increased [Not Recovered/Not Resolved]
  - Crying [Not Recovered/Not Resolved]
  - Eye swelling [Not Recovered/Not Resolved]

NARRATIVE: CASE EVENT DATE: 20200807
